FAERS Safety Report 23757169 (Version 1)
Quarter: 2024Q2

REPORT INFORMATION
  Report Type: Spontaneous
  Country: US (occurrence: US)
  Receive Date: 20240418
  Receipt Date: 20240418
  Transmission Date: 20240716
  Serious: No
  Sender: FDA-Public Use
  Company Number: US-BAYER-2024A055286

PATIENT
  Age: 71 Year
  Sex: Female

DRUGS (1)
  1. ASTEPRO [Suspect]
     Active Substance: AZELASTINE HYDROCHLORIDE
     Indication: Product used for unknown indication
     Dosage: 2 DF
     Route: 045
     Dates: start: 20240415, end: 20240415

REACTIONS (2)
  - Rhinorrhoea [None]
  - Lacrimation increased [None]

NARRATIVE: CASE EVENT DATE: 20240415
